FAERS Safety Report 16493844 (Version 1)
Quarter: 2019Q2

REPORT INFORMATION
  Report Type: Spontaneous
  Country: CH (occurrence: CH)
  Receive Date: 20190628
  Receipt Date: 20190628
  Transmission Date: 20190711
  Serious: Yes (Life-Threatening, Hospitalization, Other)
  Sender: FDA-Public Use
  Company Number: CH-B.I. PHARMACEUTICALS,INC./RIDGEFIELD-2019-SM-000012

PATIENT
  Age: 19 Year
  Sex: Male

DRUGS (15)
  1. CATAPRESAN [Suspect]
     Active Substance: CLONIDINE
     Indication: PRODUCT USED FOR UNKNOWN INDICATION
     Route: 065
  2. STILNOX [Suspect]
     Active Substance: ZOLPIDEM TARTRATE
     Indication: PRODUCT USED FOR UNKNOWN INDICATION
     Dosage: EINNAHME IN SUIZIDALER ABSICHT UM CA. 15.00 UHR  ; IN TOTAL
     Route: 048
     Dates: start: 20190211, end: 20190211
  3. DAFALGAN [Suspect]
     Active Substance: ACETAMINOPHEN
     Dosage: KOMEDIKATION: DAUERMEDIKATION SEIT UNBEKANNTEM ZEITPUNKT VOR SPITALEINTRITT AM 11.02.2019, WENN N...
     Route: 048
  4. PANTOZOL [Suspect]
     Active Substance: PANTOPRAZOLE SODIUM
     Indication: PRODUCT USED FOR UNKNOWN INDICATION
     Dosage: EINNAHME IN SUIZIDALER ABSICHT UM CA. 15.00 UHR ; IN TOTAL
     Route: 048
     Dates: start: 20190211, end: 20190211
  5. STILNOX [Suspect]
     Active Substance: ZOLPIDEM TARTRATE
     Dosage: DAUERMEDIKATION SEIT UNBEKANNTEM ZEITPUNKT VOR SPITALEINTRITT AM 11.02.2019, WENN NICHT ANDERS AN...
     Route: 048
  6. TEMESTA (ASTEMIZOLE) [Suspect]
     Active Substance: ASTEMIZOLE
     Indication: PRODUCT USED FOR UNKNOWN INDICATION
     Dosage: EINNAHME IN SUIZIDALER ABSICHT UM CA. 15.00 UHR ; IN TOTAL
     Route: 048
     Dates: start: 20190211, end: 20190211
  7. AMLODIPIN [Suspect]
     Active Substance: AMLODIPINE BESYLATE
     Dosage: KOMEDIKATION: DAUERMEDIKATION SEIT UNBEKANNTEM ZEITPUNKT VOR SPITALEINTRITT AM 11.02.2019, WENN N...
     Route: 048
  8. NOVALGIN (METAMIZOLE SODIUM) [Suspect]
     Active Substance: METAMIZOLE SODIUM
     Indication: PRODUCT USED FOR UNKNOWN INDICATION
     Dosage: EINNAHME IN SUIZIDALER ABSICHT UM CA. 15.00 UHR ; IN TOTAL
     Route: 048
     Dates: start: 20190211, end: 20190211
  9. IRFEN [Suspect]
     Active Substance: IBUPROFEN
     Dosage: KOMEDIKATION: DAUERMEDIKATION SEIT UNBEKANNTEM ZEITPUNKT VOR SPITALEINTRITT AM 11.02.2019, WENN N...
     Route: 048
  10. NEBIDO [Concomitant]
     Active Substance: TESTOSTERONE UNDECANOATE
     Indication: PRODUCT USED FOR UNKNOWN INDICATION
     Dosage: NUMBER OF UNITS IN THE INTEVAL: 2-3
     Route: 030
  11. PANTOZOL [Suspect]
     Active Substance: PANTOPRAZOLE SODIUM
     Dosage: KOMEDIKATION: DAUERMEDIKATION SEIT UNBEKANNTEM ZEITPUNKT VOR SPITALEINTRITT AM 11.02.2019, WENN N...
     Route: 048
  12. DAFALGAN [Suspect]
     Active Substance: ACETAMINOPHEN
     Indication: PRODUCT USED FOR UNKNOWN INDICATION
     Dosage: EINNAHME IN SUIZIDALER ABSICHT UM CA. 15.00 UHR ; IN TOTAL
     Route: 048
     Dates: start: 20190211, end: 20190211
  13. IRFEN [Suspect]
     Active Substance: IBUPROFEN
     Indication: PRODUCT USED FOR UNKNOWN INDICATION
     Dosage: EINNAHME IN SUIZIDALER ABSICHT UM CA. 15.00 UHR ; IN TOTAL
     Route: 048
     Dates: start: 20190211, end: 20190211
  14. TEMESTA (ASTEMIZOLE) [Suspect]
     Active Substance: ASTEMIZOLE
     Dosage: KOMEDIKATION: DAUERMEDIKATION SEIT UNBEKANNTEM ZEITPUNKT VOR SPITALEINTRITT AM 11.02.2019, WENN N...
     Route: 048
  15. AMLODIPIN [Suspect]
     Active Substance: AMLODIPINE BESYLATE
     Indication: PRODUCT USED FOR UNKNOWN INDICATION
     Dosage: EINNAHME IN SUIZIDALER ABSICHT UM CA. 15.00 UHR ; IN TOTAL
     Route: 048
     Dates: start: 20190211, end: 20190211

REACTIONS (5)
  - Somnolence [Recovered/Resolved]
  - Disturbance in attention [Recovered/Resolved]
  - Coma [Recovered/Resolved]
  - Toxicity to various agents [Recovered/Resolved]
  - Intentional overdose [Recovered/Resolved]

NARRATIVE: CASE EVENT DATE: 20190211
